FAERS Safety Report 10398271 (Version 1)
Quarter: 2014Q3

REPORT INFORMATION
  Report Type: Spontaneous
  Country: GB (occurrence: GB)
  Receive Date: 20140821
  Receipt Date: 20140821
  Transmission Date: 20150326
  Serious: Yes (Life-Threatening)
  Sender: FDA-Public Use
  Company Number: GB-TEVA-501242ISR

PATIENT
  Age: 73 Year
  Sex: Female

DRUGS (1)
  1. METHOTREXATE [Suspect]
     Active Substance: METHOTREXATE
     Indication: RHEUMATOID ARTHRITIS
     Route: 048
     Dates: end: 20140727

REACTIONS (3)
  - Gastrointestinal haemorrhage [Unknown]
  - Hepatotoxicity [Not Recovered/Not Resolved]
  - Coagulopathy [Unknown]

NARRATIVE: CASE EVENT DATE: 20140727
